FAERS Safety Report 23782825 (Version 1)
Quarter: 2024Q2

REPORT INFORMATION
  Report Type: Spontaneous
  Country: IT (occurrence: IT)
  Receive Date: 20240425
  Receipt Date: 20240425
  Transmission Date: 20240716
  Serious: Yes (Other)
  Sender: FDA-Public Use
  Company Number: None

PATIENT

DRUGS (1)
  1. BENZAC AC [Suspect]
     Active Substance: BENZOYL PEROXIDE
     Indication: Acne
     Dosage: 10 PERCENT
     Route: 061
     Dates: start: 20240410, end: 20240410

REACTIONS (2)
  - Erythema [Recovering/Resolving]
  - Drug hypersensitivity [Recovering/Resolving]

NARRATIVE: CASE EVENT DATE: 20240410
